FAERS Safety Report 9508004 (Version 7)
Quarter: 2014Q1

REPORT INFORMATION
  Report Type: Report from Study
  Country: US (occurrence: US)
  Receive Date: 20130909
  Receipt Date: 20140127
  Transmission Date: 20141002
  Serious: Yes (Other)
  Sender: FDA-Public Use
  Company Number: US-SANOFI-AVENTIS-2013SA083507

PATIENT
  Age: 52 Year
  Sex: Female
  Weight: 68.03 kg

DRUGS (7)
  1. AUBAGIO [Suspect]
     Indication: MULTIPLE SCLEROSIS
     Route: 048
     Dates: start: 20130711, end: 20131205
  2. AUBAGIO [Suspect]
     Indication: MULTIPLE SCLEROSIS
     Route: 048
     Dates: start: 20130711, end: 20131205
  3. GABAPENTIN [Concomitant]
     Indication: MULTIPLE SCLEROSIS
     Dates: start: 2009
  4. TIZANIDINE [Concomitant]
     Indication: MULTIPLE SCLEROSIS
     Dates: start: 2009
  5. LOVASTATIN [Concomitant]
     Indication: BLOOD CHOLESTEROL
     Dates: start: 2008
  6. VITAMIN D [Concomitant]
     Indication: OSTEOPENIA
     Dates: start: 2012
  7. FOSAMAX [Concomitant]
     Indication: OSTEOPENIA
     Dates: start: 2000

REACTIONS (12)
  - Pneumonia [Unknown]
  - Synovial cyst [Not Recovered/Not Resolved]
  - Meniscus injury [Not Recovered/Not Resolved]
  - Vomiting [Unknown]
  - Oral herpes [Unknown]
  - Anxiety [Unknown]
  - Vision blurred [Unknown]
  - Paraesthesia [Unknown]
  - Alopecia [Not Recovered/Not Resolved]
  - Nausea [Unknown]
  - Diarrhoea [Recovered/Resolved]
  - Sinusitis [Unknown]
